FAERS Safety Report 12071879 (Version 2)
Quarter: 2016Q1

REPORT INFORMATION
  Report Type: Spontaneous
  Country: FR (occurrence: FR)
  Receive Date: 20160212
  Receipt Date: 20160302
  Transmission Date: 20160526
  Serious: Yes (Life-Threatening, Hospitalization)
  Sender: FDA-Public Use
  Company Number: FR-009507513-1602FRA006074

PATIENT
  Age: 28 Year
  Sex: Female

DRUGS (2)
  1. TRACTOCILE [Suspect]
     Active Substance: ATOSIBAN
     Dosage: 2 CYCLES OF 18 MG/HOUR FOR 3 HOURS, THEN 6 MG/HOUR
     Route: 042
     Dates: start: 20160126, end: 20160130
  2. CELESTENE CHRONODOSE [Suspect]
     Active Substance: BETAMETHASONE
     Dosage: 2 AMPOULES, PER DAY
     Route: 042
     Dates: start: 20160126, end: 20160128

REACTIONS (1)
  - Pulmonary oedema [Recovered/Resolved]

NARRATIVE: CASE EVENT DATE: 20160129
